FAERS Safety Report 5565781-2 (Version None)
Quarter: 2007Q4

REPORT INFORMATION
  Report Type: 
  Country: None (occurrence: None)
  Receive Date: 20071213
  Receipt Date: 20071204
  Transmission Date: 20080405
  Serious: Yes (Hospitalization)
  Sender: FDA-Public Use
  Company Number: S07-USA-06211-01

PATIENT
  Age: 25 Year
  Sex: Male

DRUGS (4)
  1. LEXAPRO [Suspect]
     Indication: BIPOLAR DISORDER
     Dosage: 20 MG QD PO
     Route: 048
     Dates: start: 20060501, end: 20060101
  2. LEXAPRO [Suspect]
     Indication: DEPRESSION
     Dosage: 20 MG QD PO
     Route: 048
     Dates: start: 20060501, end: 20060101
  3. LEXAPRO [Suspect]
     Indication: BIPOLAR DISORDER
     Dosage: 30 MG QD PO
     Route: 048
     Dates: start: 20060101, end: 20060916
  4. LEXAPRO [Suspect]
     Indication: DEPRESSION
     Dosage: 30 MG QD PO
     Route: 048
     Dates: start: 20060101, end: 20060916

REACTIONS (6)
  - AGGRESSION [None]
  - AGITATION [None]
  - ALCOHOL ABUSE [None]
  - MANIA [None]
  - SUICIDAL IDEATION [None]
  - WEIGHT INCREASED [None]
